FAERS Safety Report 10026731 (Version 3)
Quarter: 2014Q2

REPORT INFORMATION
  Report Type: Spontaneous
  Country: GB (occurrence: None)
  Receive Date: 20140318
  Receipt Date: 20140508
  Transmission Date: 20141212
  Serious: Yes (Death, Life-Threatening, Hospitalization, Other)
  Sender: FDA-Public Use
  Company Number: AUR-APL-2014-02574

PATIENT
  Age: 49 Year
  Sex: Female
  Weight: 68 kg

DRUGS (9)
  1. LAMIVUDINE [Suspect]
     Indication: HIV INFECTION
     Dosage: 300MG, (150MG, 2 IN 1 D) ORAL
     Route: 048
     Dates: start: 20130308, end: 20130315
  2. ACICLOVIR (ACICLOVIR) [Suspect]
     Indication: PROPHYLAXIS
     Dosage: 800MG (400MG, 2 IN 1) ORAL
     Route: 048
     Dates: start: 201008, end: 20130515
  3. INTELENCE [Suspect]
     Indication: HIV INFECTION
     Dosage: 400MG (200MG, 2 IN 1D), ORAL
     Route: 048
     Dates: start: 20130308, end: 20130315
  4. PREZISTA [Suspect]
     Indication: HIV INFECTION
     Dosage: 1200MG (600 MG, 2 IN 1 D), ORAL
     Route: 048
     Dates: start: 20110505, end: 20121002
  5. ISENTRESS [Suspect]
     Indication: HIV INFECTION
     Dosage: 800MG (400MG, 2 IN D) ORAL
     Route: 048
     Dates: start: 20130308, end: 20130515
  6. ADCAL-D3(LEKOVIT CA) [Concomitant]
  7. FERROUS SULPHATE (FERROUS SULFATE) [Concomitant]
  8. FOLIC ACID (FOLIC ACID) [Concomitant]
  9. ETRAVIRINE (ETRAVIRINE) [Concomitant]

REACTIONS (9)
  - Renal failure acute [None]
  - Pancreatitis acute [None]
  - Multi-organ failure [None]
  - Wrong technique in drug usage process [None]
  - Pneumonia [None]
  - Acidosis [None]
  - Hypotension [None]
  - Abdominal pain [None]
  - Acidosis [None]
